FAERS Safety Report 7532828-3 (Version None)
Quarter: 2011Q2

REPORT INFORMATION
  Report Type: 
  Country: None (occurrence: None)
  Receive Date: 20110608
  Receipt Date: 20110527
  Transmission Date: 20111010
  Serious: Yes (Hospitalization)
  Sender: FDA-Public Use
  Company Number: FR-PFIZER INC-FR-WYE-H07754209

PATIENT
  Age: 53 Year
  Sex: Female

DRUGS (16)
  1. FOLINIC ACID [Concomitant]
     Dosage: 25 MG, EVERY 4 HRS
     Route: 048
  2. PANTOPRAZOLE SODIUM [Suspect]
     Dosage: 20.0 MG, 1X/DAY
     Route: 048
     Dates: end: 20081031
  3. METHOTREXATE SODIUM [Interacting]
     Indication: LEUKAEMIA
     Dosage: 15 MG, 2X/DAY
     Route: 037
     Dates: start: 20080814
  4. METHOTREXATE SODIUM [Interacting]
     Dosage: 25 MG/M2, UNK
     Route: 042
     Dates: start: 20081010
  5. FOLINIC ACID [Concomitant]
     Dosage: 400 MG, EVERY 6 HR
     Route: 042
  6. PARACETAMOL [Concomitant]
     Dosage: AS REQUIRED
     Route: 048
  7. VALACYCLOVIR HYDROCHLORIDE [Concomitant]
     Dosage: 1000 MG, 1X/DAY
     Route: 048
  8. METHOTREXATE SODIUM [Interacting]
     Indication: PRECURSOR T-LYMPHOBLASTIC LYMPHOMA/LEUKAEMIA
     Dosage: 5040 MG (OVER 24 HR) OVERDOSE AMOUNT
     Route: 042
     Dates: start: 20081024, end: 20081024
  9. FOLINIC ACID [Concomitant]
     Dosage: 200 MG, EVERY 6 HR
     Route: 042
  10. VALACICLOVIR [Concomitant]
     Dosage: 1000 MG, 1X/DAY
  11. PROZAC [Concomitant]
     Dosage: 20 MG, 1X/DAY
     Route: 048
  12. FLUOXETINE [Concomitant]
     Dosage: 20 MG, 1X/DAY
  13. METHOTREXATE SODIUM [Interacting]
     Dosage: 40 MG, UNK
     Route: 037
     Dates: start: 20081010
  14. FOLINIC ACID [Concomitant]
     Dosage: 25 MG, 4X/DAY
     Route: 042
  15. FOLINIC ACID [Concomitant]
     Dosage: 100 MG, EVERY 6 HRS OVER 24 HR
     Route: 042
     Dates: start: 20081027
  16. FOLINIC ACID [Concomitant]
     Dosage: 200 MG, EVERY 6 HR
     Route: 042

REACTIONS (4)
  - DRUG CLEARANCE DECREASED [None]
  - RENAL FAILURE ACUTE [None]
  - DRUG INTERACTION [None]
  - DRUG LEVEL INCREASED [None]
